FAERS Safety Report 25504863 (Version 1)
Quarter: 2025Q3

REPORT INFORMATION
  Report Type: Spontaneous
  Country: US (occurrence: None)
  Receive Date: 20250701
  Receipt Date: 20250701
  Transmission Date: 20251021
  Serious: Yes (Hospitalization)
  Sender: FDA-CTU
  Company Number: None

PATIENT
  Age: 84 Year
  Sex: Female
  Weight: 50.4 kg

DRUGS (13)
  1. RINVOQ [Suspect]
     Active Substance: UPADACITINIB
     Indication: Rheumatoid arthritis
     Dosage: 15 MG DAILY ORAL ?
     Route: 048
     Dates: start: 20200728
  2. PROLIA [Concomitant]
     Active Substance: DENOSUMAB
     Dates: start: 20230126
  3. DICLOFENAC [Concomitant]
     Active Substance: DICLOFENAC
  4. ERGOCALCIFEROL [Concomitant]
     Active Substance: ERGOCALCIFEROL
  5. CALCIUM CITRATE\VITAMIN D [Concomitant]
     Active Substance: CALCIUM CITRATE\VITAMIN D
  6. GABAPENTIN [Concomitant]
     Active Substance: GABAPENTIN
  7. CARVEDILOL [Concomitant]
     Active Substance: CARVEDILOL
  8. Amlodipine 70mg [Concomitant]
  9. K-Dur 20 mEq [Concomitant]
  10. Memantine 5mg [Concomitant]
  11. SENNA [Concomitant]
     Active Substance: SENNOSIDES
  12. ALPRAZOLAM [Concomitant]
     Active Substance: ALPRAZOLAM
  13. Nitroglycerin 0.4mg SL tab [Concomitant]

REACTIONS (2)
  - Peripheral embolism [None]
  - Pulmonary embolism [None]

NARRATIVE: CASE EVENT DATE: 20250701
